FAERS Safety Report 8023710-6 (Version None)
Quarter: 2012Q1

REPORT INFORMATION
  Report Type: 
  Country: None (occurrence: None)
  Receive Date: 20120105
  Receipt Date: 20120103
  Transmission Date: 20120608
  Serious: Yes (Other)
  Sender: FDA-Public Use
  Company Number: US-BAYER-2012-000702

PATIENT
  Age: 21 Year
  Sex: Female

DRUGS (1)
  1. MIRENA [Suspect]
     Indication: PRODUCT USED FOR UNKNOWN INDICATION
     Dosage: 20 MCG/24HR, CONT
     Route: 015
     Dates: start: 20111209, end: 20111223

REACTIONS (4)
  - ABDOMINAL PAIN [None]
  - HAEMORRHAGIC OVARIAN CYST [None]
  - PELVIC PAIN [None]
  - VAGINAL HAEMORRHAGE [None]
